FAERS Safety Report 4952097-8 (Version None)
Quarter: 2006Q1

REPORT INFORMATION
  Report Type: 
  Country: None (occurrence: None)
  Receive Date: 20060323
  Receipt Date: 20041018
  Transmission Date: 20060701
  Serious: Yes (Death, Life-Threatening, Hospitalization, Disabling)
  Sender: FDA-Public Use
  Company Number: AU-SANOFI-SYNTHELABO-D01200404230

PATIENT
  Sex: Female
  Weight: 85 kg

DRUGS (9)
  1. CLOPIDOGREL [Suspect]
     Indication: ATRIAL FIBRILLATION
     Route: 048
     Dates: start: 20031021, end: 20041001
  2. ASPIRIN [Concomitant]
     Indication: ATRIAL FIBRILLATION
     Dosage: 100 MG
     Route: 048
     Dates: start: 20031021
  3. MORPHINE [Concomitant]
  4. PENTOTHAL [Concomitant]
  5. VECHRONIUM [Concomitant]
  6. BUXEMETHASONE [Concomitant]
  7. ATENOLOL [Concomitant]
  8. SIMVASTATIN [Concomitant]
  9. HYDRALAZINE [Concomitant]

REACTIONS (2)
  - HAEMORRHAGIC STROKE [None]
  - SUBARACHNOID HAEMORRHAGE [None]
